FAERS Safety Report 7828712-8 (Version None)
Quarter: 2011Q4

REPORT INFORMATION
  Report Type: 
  Country: None (occurrence: None)
  Receive Date: 20111020
  Receipt Date: 20111014
  Transmission Date: 20120403
  Serious: Yes (Hospitalization)
  Sender: FDA-Public Use
  Company Number: DE-ABBOTT-11P-062-0864377-00

PATIENT
  Sex: Male

DRUGS (1)
  1. HUMIRA [Suspect]
     Indication: CROHN'S DISEASE
     Route: 058
     Dates: start: 20100105, end: 20110701

REACTIONS (5)
  - DIVERTICULUM INTESTINAL [None]
  - RENAL CELL CARCINOMA [None]
  - ABDOMINAL PAIN [None]
  - INTESTINAL FISTULA [None]
  - ABSCESS INTESTINAL [None]
